FAERS Safety Report 6506513-0 (Version None)
Quarter: 2009Q4

REPORT INFORMATION
  Report Type: 
  Country: None (occurrence: None)
  Receive Date: 20091221
  Receipt Date: 20091120
  Transmission Date: 20100525
  Serious: No
  Sender: FDA-Public Use
  Company Number: US-BAYER-200940755NA

PATIENT
  Age: 52 Year
  Sex: Female

DRUGS (2)
  1. AVELOX [Suspect]
     Indication: SINUSITIS
  2. BLOOD PRESSURE MEDICATION (NOS) [Concomitant]

REACTIONS (3)
  - CHEST PAIN [None]
  - JOINT CREPITATION [None]
  - MYALGIA [None]
